FAERS Safety Report 9920074 (Version 2)
Quarter: 2014Q1

REPORT INFORMATION
  Report Type: Report from Study
  Country: IL (occurrence: IL)
  Receive Date: 20140224
  Receipt Date: 20140224
  Transmission Date: 20141002
  Serious: Yes (Other)
  Sender: FDA-Public Use
  Company Number: PHHY2013IL011014

PATIENT
  Age: 45 Year
  Sex: Female

DRUGS (2)
  1. GILENYA [Suspect]
     Indication: MULTIPLE SCLEROSIS
     Dosage: 0.5 MG, QD
     Route: 048
     Dates: start: 20110811, end: 20140123
  2. GILENYA [Suspect]
     Dosage: 0.5 MG, QOD
     Route: 048

REACTIONS (5)
  - General physical health deterioration [Unknown]
  - Movement disorder [Unknown]
  - Muscular weakness [Unknown]
  - Asthenia [Recovering/Resolving]
  - Prescribed underdose [Unknown]
